FAERS Safety Report 19685801 (Version 2)
Quarter: 2021Q3

REPORT INFORMATION
  Report Type: Spontaneous
  Country: US (occurrence: US)
  Receive Date: 20210811
  Receipt Date: 20210902
  Transmission Date: 20211014
  Serious: No
  Sender: FDA-Public Use
  Company Number: US-ASTRAZENECA-2021A666851

PATIENT
  Age: 18431 Day
  Sex: Male
  Weight: 77.6 kg

DRUGS (4)
  1. BRILINTA [Suspect]
     Active Substance: TICAGRELOR
     Indication: STENT PLACEMENT
     Route: 048
     Dates: start: 20210731
  2. ASPIRIN. [Concomitant]
     Active Substance: ASPIRIN
     Indication: STENT PLACEMENT
     Route: 065
     Dates: start: 20210731
  3. LIPITOR [Concomitant]
     Active Substance: ATORVASTATIN CALCIUM
  4. ATORVASTATIN [Concomitant]
     Active Substance: ATORVASTATIN
     Indication: STENT PLACEMENT
     Dates: start: 20210731

REACTIONS (4)
  - Discomfort [Unknown]
  - Dyspnoea [Not Recovered/Not Resolved]
  - Fatigue [Recovered/Resolved]
  - Asthenia [Recovered/Resolved]

NARRATIVE: CASE EVENT DATE: 20210802
